FAERS Safety Report 7063560-0 (Version None)
Quarter: 2010Q4

REPORT INFORMATION
  Report Type: 
  Country: None (occurrence: None)
  Receive Date: 20101026
  Receipt Date: 20100610
  Transmission Date: 20110411
  Serious: No
  Sender: FDA-Public Use
  Company Number: US-ABBOTT-10P-163-0651621-00

PATIENT
  Sex: Female
  Weight: 79.45 kg

DRUGS (4)
  1. LUPRON DEPOT [Suspect]
     Indication: ENDOMETRIOSIS
     Route: 048
     Dates: start: 20100329, end: 20100501
  2. CRESTOR [Concomitant]
     Indication: PRODUCT USED FOR UNKNOWN INDICATION
  3. NORETHINDRONE [Concomitant]
     Indication: HORMONE REPLACEMENT THERAPY
  4. PENTERMINE [Concomitant]
     Indication: WEIGHT DECREASED

REACTIONS (1)
  - ARTHRALGIA [None]
